FAERS Safety Report 9254635 (Version 1)
Quarter: 2013Q2

REPORT INFORMATION
  Report Type: Spontaneous
  Country: US (occurrence: US)
  Receive Date: 20130425
  Receipt Date: 20130425
  Transmission Date: 20140414
  Serious: Yes (Hospitalization, Other)
  Sender: FDA-Public Use
  Company Number: US-MYLANLABS-2013S1004836

PATIENT
  Age: 59 Year
  Sex: Female
  Weight: 93.9 kg

DRUGS (2)
  1. PANTOPRAZOLE SODIUM DELAYED-RELEASE TABLETS [Suspect]
     Indication: GASTROOESOPHAGEAL REFLUX DISEASE
     Route: 048
     Dates: start: 20130225, end: 20130225
  2. PANTOPRAZOLE SODIUM DELAYED-RELEASE TABLETS [Suspect]
     Indication: DIVERTICULITIS
     Route: 048
     Dates: start: 20130225, end: 20130225

REACTIONS (1)
  - Hypersensitivity [Recovered/Resolved]
